FAERS Safety Report 16189780 (Version 1)
Quarter: 2019Q2

REPORT INFORMATION
  Report Type: Spontaneous
  Country: US (occurrence: US)
  Receive Date: 20190412
  Receipt Date: 20190412
  Transmission Date: 20190711
  Serious: No
  Sender: FDA-Public Use
  Company Number: US-APOTEX-2019AP010078

PATIENT
  Age: 35 Year
  Sex: Male

DRUGS (3)
  1. IMATINIB. [Suspect]
     Active Substance: IMATINIB MESYLATE
     Indication: MASTOCYTOSIS
     Dosage: UNK
     Route: 065
  2. IMATINIB. [Suspect]
     Active Substance: IMATINIB MESYLATE
     Indication: GASTROINTESTINAL STROMAL TUMOUR
  3. IMATINIB. [Suspect]
     Active Substance: IMATINIB MESYLATE
     Indication: OESOPHAGEAL ACHALASIA

REACTIONS (6)
  - Fatigue [Unknown]
  - Pyrexia [Unknown]
  - Nausea [Unknown]
  - Myalgia [Unknown]
  - Drug intolerance [Unknown]
  - Vomiting [Unknown]
